FAERS Safety Report 9752015 (Version 1)
Quarter: 2013Q4

REPORT INFORMATION
  Report Type: Spontaneous
  Country: IT (occurrence: None)
  Receive Date: 20131211
  Receipt Date: 20131211
  Transmission Date: 20140711
  Serious: Yes (Hospitalization)
  Sender: FDA-Public Use
  Company Number: INT_00349_2013

PATIENT
  Age: 13 Year
  Sex: Female

DRUGS (3)
  1. CEFTRIAXONE [Suspect]
     Indication: PNEUMONIA
     Dates: start: 20130704, end: 20130706
  2. VECLAM [Suspect]
     Indication: PNEUMONIA
     Dates: start: 20130704, end: 20130706
  3. BENTELAN [Concomitant]

REACTIONS (1)
  - Urticaria [None]
